FAERS Safety Report 21638656 (Version 1)
Quarter: 2022Q4

REPORT INFORMATION
  Report Type: Spontaneous
  Country: JP (occurrence: JP)
  Receive Date: 20221124
  Receipt Date: 20221124
  Transmission Date: 20230113
  Serious: Yes (Hospitalization, Other)
  Sender: FDA-Public Use
  Company Number: JP-SUN PHARMACEUTICAL INDUSTRIES LTD-2022RR-365650

PATIENT
  Age: 82 Year
  Sex: Male

DRUGS (6)
  1. NIFEDIPINE [Suspect]
     Active Substance: NIFEDIPINE
     Indication: Cerebral artery embolism
     Dosage: 20 MILLIGRAM, BID, AFTER BREAKFAST AND DINNER
     Route: 065
  2. NIFEDIPINE [Suspect]
     Active Substance: NIFEDIPINE
     Indication: Atrial fibrillation
  3. FEBUXOSTAT [Concomitant]
     Active Substance: FEBUXOSTAT
     Indication: Hyperuricaemia
     Dosage: 20 MILLIGRAM, DAILY, AFTER BREAKFAST
     Route: 065
  4. OLMESARTAN [Concomitant]
     Active Substance: OLMESARTAN
     Indication: Cerebral artery embolism
     Dosage: 20 MILLIGRAM, BID,  AFTER BREAKFAST AND DINNER
     Route: 065
  5. OLMESARTAN [Concomitant]
     Active Substance: OLMESARTAN
     Indication: Atrial fibrillation
  6. OLMESARTAN [Concomitant]
     Active Substance: OLMESARTAN
     Indication: Hyperuricaemia

REACTIONS (2)
  - Embolic stroke [Unknown]
  - Drug ineffective [Unknown]
